FAERS Safety Report 13718521 (Version 5)
Quarter: 2020Q1

REPORT INFORMATION
  Report Type: Spontaneous
  Country: US (occurrence: US)
  Receive Date: 20170705
  Receipt Date: 20200312
  Transmission Date: 20200409
  Serious: Yes (Other)
  Sender: FDA-Public Use
  Company Number: US-VERTEX PHARMACEUTICALS-2017-003441

PATIENT
  Age: 40 Year
  Sex: Male

DRUGS (3)
  1. ORKAMBI [Suspect]
     Active Substance: IVACAFTOR\LUMACAFTOR
     Dosage: REDUCED
     Route: 048
     Dates: start: 20170819, end: 20170819
  2. ORKAMBI [Suspect]
     Active Substance: IVACAFTOR\LUMACAFTOR
     Dosage: UNK
     Route: 048
     Dates: start: 20170805, end: 20170808
  3. ORKAMBI [Suspect]
     Active Substance: IVACAFTOR\LUMACAFTOR
     Indication: CYSTIC FIBROSIS
     Dosage: 200/ 125 MG, BID
     Route: 048
     Dates: start: 20170611, end: 20170611

REACTIONS (8)
  - Asthma [Unknown]
  - Dyspnoea [Unknown]
  - Eye swelling [Unknown]
  - Pruritus [Unknown]
  - Hyperhidrosis [Unknown]
  - Chest discomfort [Unknown]
  - Urticaria [Unknown]
  - Swollen tongue [Unknown]

NARRATIVE: CASE EVENT DATE: 201706
